FAERS Safety Report 6292000-4 (Version None)
Quarter: 2009Q3

REPORT INFORMATION
  Report Type: 
  Country: None (occurrence: None)
  Receive Date: 20090729
  Receipt Date: 20090722
  Transmission Date: 20100115
  Serious: Yes (Other)
  Sender: FDA-Public Use
  Company Number: 8042625

PATIENT
  Age: 53 Year
  Sex: Male

DRUGS (27)
  1. KEPPRA [Suspect]
     Dates: start: 20070327, end: 20070424
  2. CLOZAPINE [Suspect]
     Dosage: 50 MG PO
     Route: 048
     Dates: start: 20081007, end: 20081015
  3. DESYREL [Suspect]
     Dates: end: 20081104
  4. VALPROATE SODIUM [Suspect]
  5. ZYPREXA [Suspect]
     Dosage: 15 MG
     Dates: start: 20061212, end: 20070109
  6. ZYPREXA [Suspect]
     Dosage: 20 MG
     Dates: start: 20070109, end: 20070522
  7. ZYPREXA [Suspect]
     Dosage: 30 MG /D
     Dates: start: 20070522, end: 20070717
  8. ZYPREXA [Suspect]
     Dosage: 25 MG /D
     Dates: start: 20080826, end: 20081016
  9. ZYPREXA [Suspect]
     Dosage: 35 MG /D
     Dates: start: 20081016, end: 20081104
  10. ZYPREXA [Suspect]
     Dosage: 20 MG /D
     Dates: start: 20081104, end: 20081118
  11. ZYPREXA [Suspect]
     Dosage: 10 MG /D
     Dates: start: 20081118, end: 20081125
  12. ZYPREXA [Suspect]
     Dosage: 5 MG /D
     Dates: start: 20081125, end: 20081202
  13. OLANZAPINE [Suspect]
  14. LITHIUM [Concomitant]
  15. RESTORIL /0039379/ [Concomitant]
  16. HALDOL [Concomitant]
  17. CELEXA [Concomitant]
  18. KLONOPIN [Concomitant]
  19. XANAX [Concomitant]
  20. ARTANE [Concomitant]
  21. PROLIXIN /00000602/ [Concomitant]
  22. GABAPENTIN [Concomitant]
  23. COGENTIN [Concomitant]
  24. REMERON [Concomitant]
  25. MINIPRESS [Concomitant]
  26. PALPERIDONE/INVEGA [Concomitant]
  27. LEVOTHYROXINE SODIUM [Concomitant]

REACTIONS (1)
  - GRANULOCYTOPENIA [None]
